FAERS Safety Report 9320274 (Version 2)
Quarter: 2013Q3

REPORT INFORMATION
  Report Type: Report from Study
  Country: JP (occurrence: JP)
  Receive Date: 20130530
  Receipt Date: 20130920
  Transmission Date: 20140515
  Serious: Yes (Hospitalization)
  Sender: FDA-Public Use
  Company Number: JP-AMGEN-JPNCT2013038477

PATIENT
  Age: 63 Year
  Sex: Female
  Weight: 47 kg

DRUGS (21)
  1. ROMIPLOSTIM - KHK [Suspect]
     Indication: IMMUNE THROMBOCYTOPENIC PURPURA
     Dosage: 1.1 MUG/KG, Q2WK
     Route: 058
     Dates: start: 20120224, end: 20130507
  2. ROMIPLOSTIM - KHK [Suspect]
     Dosage: 2.1 MUG/KG, Q2WK
     Route: 058
     Dates: start: 20120511, end: 20120608
  3. ROMIPLOSTIM - KHK [Suspect]
     Dosage: 2.1 MUG/KG, Q3WK
     Route: 058
     Dates: start: 20120629, end: 20120921
  4. ROMIPLOSTIM - KHK [Suspect]
     Dosage: 2.1 MUG/KG, QD
     Route: 058
     Dates: start: 20121005, end: 20121005
  5. ROMIPLOSTIM - KHK [Suspect]
     Dosage: 2.1 MUG/KG, QD
     Route: 058
     Dates: start: 20121026, end: 20121026
  6. ROMIPLOSTIM - KHK [Suspect]
     Dosage: 2.1 MUG/KG, QD
     Route: 058
     Dates: start: 20121109, end: 20121109
  7. ROMIPLOSTIM - KHK [Suspect]
     Dosage: 2.1 MUG/KG, QD
     Route: 058
     Dates: start: 20121122, end: 20121122
  8. ROMIPLOSTIM - KHK [Suspect]
     Dosage: 3.2 MUG/KG, Q2WK
     Route: 058
     Dates: start: 20121207, end: 20130118
  9. ROMIPLOSTIM - KHK [Suspect]
     Dosage: 4.3 MUG/KG, Q2WK
     Route: 058
     Dates: start: 20130201
  10. PREDONINE [Concomitant]
     Indication: IMMUNE THROMBOCYTOPENIC PURPURA
     Dosage: 10 MG, UNK
     Route: 048
     Dates: start: 20111216
  11. URSO [Concomitant]
     Indication: BILIARY CIRRHOSIS PRIMARY
     Dosage: UNK
     Route: 048
  12. ONEALFA [Concomitant]
     Indication: PROPHYLAXIS
     Dosage: UNK
     Route: 048
  13. GASTER D [Concomitant]
     Indication: PROPHYLAXIS
     Dosage: UNK
     Route: 048
  14. SIGMART [Concomitant]
     Indication: MYOCARDIAL ISCHAEMIA
     Dosage: UNK
     Route: 048
  15. BAYASPIRIN [Concomitant]
     Indication: MYOCARDIAL ISCHAEMIA
     Dosage: UNK
     Route: 048
  16. MIKELAN LA [Concomitant]
     Indication: NORMAL TENSION GLAUCOMA
     Dosage: UNK
     Route: 047
  17. DETANTOL [Concomitant]
     Indication: NORMAL TENSION GLAUCOMA
     Dosage: UNK
     Route: 047
  18. XALATAN [Concomitant]
     Indication: NORMAL TENSION GLAUCOMA
     Dosage: UNK
     Route: 047
  19. CONIEL [Concomitant]
     Indication: MYOCARDIAL ISCHAEMIA
     Dosage: UNK
     Route: 048
  20. SOLU-CORTEF [Concomitant]
     Indication: PROPHYLAXIS
     Dosage: UNK
     Route: 065
  21. POLARAMINE [Concomitant]
     Indication: PROPHYLAXIS
     Dosage: UNK
     Route: 065

REACTIONS (5)
  - Platelet count decreased [Recovering/Resolving]
  - Cataract [Not Recovered/Not Resolved]
  - Hordeolum [Recovered/Resolved]
  - Rhinitis allergic [Recovered/Resolved]
  - Nasopharyngitis [Not Recovered/Not Resolved]
